FAERS Safety Report 9191232 (Version 3)
Quarter: 2013Q3

REPORT INFORMATION
  Report Type: Report from Study
  Country: JP (occurrence: JP)
  Receive Date: 20130326
  Receipt Date: 20130708
  Transmission Date: 20140515
  Serious: Yes (Hospitalization)
  Sender: FDA-Public Use
  Company Number: JP-NAPPMUNDI-GBR-2013-0013521

PATIENT
  Age: 69 Year
  Sex: Male

DRUGS (8)
  1. OXYCODONE HCL PR TABLET 40 MG [Suspect]
     Indication: CANCER PAIN
     Dosage: 40 MG, DAILY
     Route: 048
     Dates: start: 20120913, end: 20120921
  2. CARBOPLATIN [Suspect]
     Indication: LUNG NEOPLASM MALIGNANT
     Dosage: UNK
     Dates: start: 20120910, end: 20120910
  3. ETOPOSIDE [Suspect]
     Indication: LUNG NEOPLASM MALIGNANT
     Dosage: UNK
     Dates: start: 20120910, end: 20120912
  4. OXYCODONE HCL IR POWDER 0.5% [Concomitant]
     Indication: CANCER PAIN
     Dosage: 10 MG, DAILY
     Route: 048
     Dates: start: 20120916, end: 20120916
  5. MAGNESIUM OXIDE [Concomitant]
     Indication: PROPHYLAXIS
     Dosage: UNK
     Route: 048
     Dates: start: 20120913
  6. NOVAMIN                            /00013301/ [Concomitant]
     Indication: PROPHYLAXIS
     Dosage: UNK
     Route: 048
     Dates: start: 20120913, end: 20120921
  7. LENDORMIN [Concomitant]
     Dosage: UNK
     Route: 048
     Dates: start: 20120913
  8. ACETAMINOPHEN [Concomitant]
     Indication: CANCER PAIN
     Dosage: UNK
     Route: 048
     Dates: start: 20120830

REACTIONS (2)
  - Delirium [Recovering/Resolving]
  - Febrile neutropenia [Recovered/Resolved]
